FAERS Safety Report 10891657 (Version 2)
Quarter: 2015Q1

REPORT INFORMATION
  Report Type: Spontaneous
  Country: JP (occurrence: JP)
  Receive Date: 20150306
  Receipt Date: 20150318
  Transmission Date: 20150721
  Serious: Yes (Hospitalization)
  Sender: FDA-Public Use
  Company Number: JP-ABBVIE-15P-087-1356784-00

PATIENT

DRUGS (5)
  1. KLARICID [Suspect]
     Active Substance: CLARITHROMYCIN
     Indication: MYCOBACTERIUM AVIUM COMPLEX INFECTION
     Route: 048
  2. ALL OTHER THERAPEUTIC PRODUCTS [Concomitant]
     Active Substance: UNSPECIFIED INGREDIENT
     Indication: MYCOBACTERIUM AVIUM COMPLEX INFECTION
  3. KLARICID [Suspect]
     Active Substance: CLARITHROMYCIN
     Indication: MULTIPLE SCLEROSIS
     Route: 048
  4. KLARICID [Suspect]
     Active Substance: CLARITHROMYCIN
     Indication: LUNG INFECTION
     Route: 048
  5. ALL OTHER THERAPEUTIC PRODUCTS [Concomitant]
     Active Substance: UNSPECIFIED INGREDIENT
     Indication: MULTIPLE SCLEROSIS

REACTIONS (1)
  - Optic neuritis [Unknown]
